FAERS Safety Report 10413012 (Version 1)
Quarter: 2014Q2

REPORT INFORMATION
  Report Type: Spontaneous
  Country: US (occurrence: None)
  Receive Date: 20140530
  Receipt Date: 20140530
  Transmission Date: 20141212
  Serious: No
  Sender: FDA-Public Use
  Company Number: 227062

PATIENT
  Sex: Male

DRUGS (1)
  1. PICATO [Suspect]
     Indication: ACTINIC KERATOSIS
     Dosage: 1D
     Route: 061
     Dates: start: 20140407

REACTIONS (11)
  - Application site erythema [None]
  - Application site warmth [None]
  - Application site swelling [None]
  - Application site exfoliation [None]
  - Application site scab [None]
  - Application site discharge [None]
  - Application site pruritus [None]
  - Application site discolouration [None]
  - Inappropriate schedule of drug administration [None]
  - Product quality issue [None]
  - Drug administration error [None]
